FAERS Safety Report 5058218-3 (Version None)
Quarter: 2006Q3

REPORT INFORMATION
  Report Type: 
  Country: None (occurrence: None)
  Receive Date: 20060721
  Receipt Date: 20060629
  Transmission Date: 20061208
  Serious: Yes (Hospitalization)
  Sender: FDA-Public Use
  Company Number: PHBS2006JP09847

PATIENT
  Age: 64 Year
  Sex: Male
  Weight: 77 kg

DRUGS (10)
  1. ZOMETA [Suspect]
     Indication: METASTASES TO BONE
     Dosage: 4 MG, ONCE/SINGLE
     Route: 042
     Dates: start: 20060623, end: 20060623
  2. CEFMETAZON [Concomitant]
     Indication: URINARY TRACT INFECTION
     Dosage: 2 MG/D
     Route: 042
     Dates: start: 20060616, end: 20060616
  3. CEFMETAZON [Concomitant]
     Dosage: 1 MG/D
     Route: 042
     Dates: start: 20060617
  4. FLOMOX [Concomitant]
     Indication: URINARY TRACT INFECTION
     Dosage: 300 MG/D
     Route: 048
     Dates: start: 20060617, end: 20060623
  5. ODYNE [Concomitant]
     Indication: METASTASES TO BONE
     Dosage: 250 MG/D
     Route: 048
     Dates: start: 20060617, end: 20060630
  6. SALOBEL [Concomitant]
     Indication: HYPERURICAEMIA
     Dosage: 100 MG/D
     Route: 048
     Dates: start: 20060616, end: 20060630
  7. NORVASC [Concomitant]
     Indication: HYPERTENSION
     Dosage: 5 MG/D
     Route: 048
     Dates: start: 20060616, end: 20060630
  8. ZOLADEX [Concomitant]
     Indication: METASTASES TO BONE
     Dosage: 3.6 MG/D
     Route: 058
     Dates: start: 20060623, end: 20060623
  9. LOXONIN [Concomitant]
     Indication: BACK PAIN
     Dosage: 180 MG/D
     Route: 048
     Dates: start: 20060621, end: 20060626
  10. HYPEN [Concomitant]
     Indication: BACK PAIN
     Dosage: 40 MG/D
     Route: 048
     Dates: start: 20060627, end: 20060630

REACTIONS (8)
  - BONE PAIN [None]
  - DEPRESSED LEVEL OF CONSCIOUSNESS [None]
  - HAEMATOCRIT DECREASED [None]
  - HAEMOGLOBIN DECREASED [None]
  - PAIN [None]
  - PYREXIA [None]
  - SHOCK [None]
  - VAGUS NERVE DISORDER [None]
